FAERS Safety Report 10572670 (Version 1)
Quarter: 2014Q4

REPORT INFORMATION
  Report Type: Spontaneous
  Country: US (occurrence: None)
  Receive Date: 20141107
  Receipt Date: 20141107
  Transmission Date: 20150529
  Serious: No
  Sender: FDA-Public Use
  Company Number: None

PATIENT
  Age: 85 Year
  Sex: Male

DRUGS (1)
  1. ENBREL [Suspect]
     Active Substance: ETANERCEPT
     Indication: PRODUCT USED FOR UNKNOWN INDICATION
     Dosage: FOR NOW, MD WILL EVALUATED IN A MONTH, 50 MG, QW, SQ
     Dates: start: 20130305, end: 20140905

REACTIONS (1)
  - Renal impairment [None]

NARRATIVE: CASE EVENT DATE: 20140830
